FAERS Safety Report 14871516 (Version 1)
Quarter: 2018Q2

REPORT INFORMATION
  Report Type: Spontaneous
  Country: US (occurrence: US)
  Receive Date: 20180509
  Receipt Date: 20180509
  Transmission Date: 20180711
  Serious: Yes (Other)
  Sender: FDA-Public Use
  Company Number: US-ELI_LILLY_AND_COMPANY-US201805001022

PATIENT
  Sex: Male

DRUGS (1)
  1. HUMALOG [Suspect]
     Active Substance: INSULIN LISPRO
     Indication: TYPE 1 DIABETES MELLITUS
     Dosage: 5-8 UNITS BEFORE EACH MEAL
     Route: 065
     Dates: start: 2001

REACTIONS (4)
  - Hypoacusis [Unknown]
  - Blood glucose increased [Unknown]
  - Drug dose omission [Unknown]
  - Macular degeneration [Unknown]
